FAERS Safety Report 8716408 (Version 3)
Quarter: 2012Q4

REPORT INFORMATION
  Report Type: 
  Country: US (occurrence: US)
  Receive Date: 20120810
  Receipt Date: 20121214
  Transmission Date: 20130627
  Serious: No
  Sender: FDA-Public Use
  Company Number: US-009507513-1208USA001219

PATIENT
  Sex: Male
  Weight: 63.49 kg

DRUGS (1)
  1. PROPECIA [Suspect]
     Indication: ANDROGENETIC ALOPECIA
     Dosage: 1 mg, qd
     Route: 048
     Dates: start: 1999

REACTIONS (1)
  - Drug ineffective [Recovered/Resolved]
